FAERS Safety Report 13260937 (Version 1)
Quarter: 2017Q1

REPORT INFORMATION
  Report Type: Spontaneous
  Country: US (occurrence: US)
  Receive Date: 20170222
  Receipt Date: 20170222
  Transmission Date: 20170428
  Serious: No
  Sender: FDA-Public Use
  Company Number: US-ALLERGAN-1675775US

PATIENT
  Age: 49 Year
  Sex: Female
  Weight: 52.15 kg

DRUGS (2)
  1. AVAGE [Suspect]
     Active Substance: TAZAROTENE
     Indication: SKIN WRINKLING
     Dosage: PEA SIZE, QHS
     Route: 061
  2. AVAGE [Suspect]
     Active Substance: TAZAROTENE
     Indication: ACNE

REACTIONS (1)
  - Rash erythematous [Not Recovered/Not Resolved]

NARRATIVE: CASE EVENT DATE: 201610
